FAERS Safety Report 13065194 (Version 2)
Quarter: 2017Q1

REPORT INFORMATION
  Report Type: Report from Study
  Country: CA (occurrence: CA)
  Receive Date: 20161227
  Receipt Date: 20170201
  Transmission Date: 20170428
  Serious: Yes (Other)
  Sender: FDA-Public Use
  Company Number: CA-JNJFOC-20161112530

PATIENT
  Age: 70 Year
  Sex: Male

DRUGS (4)
  1. IMBRUVICA [Suspect]
     Active Substance: IBRUTINIB
     Indication: MANTLE CELL LYMPHOMA
     Dosage: AT SUPPER TIME
     Route: 048
     Dates: start: 20161101
  2. ADALAT [Concomitant]
     Active Substance: NIFEDIPINE
     Indication: HYPERTENSION
     Route: 065
  3. LASIX [Concomitant]
     Active Substance: FUROSEMIDE
     Indication: HYPERTENSION
     Route: 065
  4. LASIX [Concomitant]
     Active Substance: FUROSEMIDE
     Indication: HYPERTENSION
     Route: 065

REACTIONS (11)
  - Dizziness [Recovered/Resolved]
  - Pleural effusion [Recovering/Resolving]
  - Rhinorrhoea [Unknown]
  - Haemoglobin abnormal [Unknown]
  - Product difficult to swallow [Recovered/Resolved]
  - Contusion [Unknown]
  - Insomnia [Recovering/Resolving]
  - Energy increased [Not Recovered/Not Resolved]
  - Cough [Unknown]
  - Dyspepsia [Not Recovered/Not Resolved]
  - Sneezing [Unknown]

NARRATIVE: CASE EVENT DATE: 201611
